FAERS Safety Report 24951314 (Version 1)
Quarter: 2025Q1

REPORT INFORMATION
  Report Type: Spontaneous
  Country: CL (occurrence: CL)
  Receive Date: 20250210
  Receipt Date: 20250210
  Transmission Date: 20250409
  Serious: Yes (Hospitalization)
  Sender: NOVARTIS
  Company Number: CL-002147023-NVSC2025CL021764

PATIENT
  Age: 66 Year
  Sex: Female

DRUGS (8)
  1. EVEROLIMUS [Suspect]
     Active Substance: EVEROLIMUS
     Indication: Immunosuppressant drug therapy
     Dosage: 2.5 MG, Q12H
     Route: 065
  2. PREDNISONE [Concomitant]
     Active Substance: PREDNISONE
     Indication: Immunosuppressant drug therapy
     Dosage: 5 MG, QD
     Route: 065
  3. MYCOPHENOLATE MOFETIL [Concomitant]
     Active Substance: MYCOPHENOLATE MOFETIL
     Indication: Immunosuppressant drug therapy
     Dosage: 750 MG, QD
     Route: 065
  4. DILTIAZEM [Concomitant]
     Active Substance: DILTIAZEM
     Indication: Diabetes mellitus
     Route: 065
  5. FOLIC ACID [Concomitant]
     Active Substance: FOLIC ACID
     Indication: Diabetes mellitus
     Route: 065
  6. ATORVASTATIN [Concomitant]
     Active Substance: ATORVASTATIN
     Indication: Diabetes mellitus
     Route: 065
  7. OMEPRAZOLE [Concomitant]
     Active Substance: OMEPRAZOLE
     Indication: Diabetes mellitus
     Route: 065
  8. NPH INSULIN [Concomitant]
     Active Substance: INSULIN BEEF
     Indication: Diabetes mellitus
     Route: 065

REACTIONS (2)
  - Stomatitis [Unknown]
  - Product use in unapproved indication [Unknown]
